FAERS Safety Report 5892937-1 (Version None)
Quarter: 2008Q3

REPORT INFORMATION
  Report Type: 
  Country: None (occurrence: None)
  Receive Date: 20080922
  Receipt Date: 20080922
  Transmission Date: 20090109
  Serious: No
  Sender: FDA-Public Use
  Company Number: None

PATIENT
  Age: 48 Year
  Sex: Female
  Weight: 88.4514 kg

DRUGS (1)
  1. CHANTIX [Suspect]
     Indication: SMOKING CESSATION THERAPY
     Dates: start: 20080401, end: 20080421

REACTIONS (10)
  - ANGER [None]
  - DEPRESSED MOOD [None]
  - DRUG INEFFECTIVE [None]
  - DRUG WITHDRAWAL SYNDROME [None]
  - FEELING ABNORMAL [None]
  - FRUSTRATION [None]
  - MOOD SWINGS [None]
  - PARAESTHESIA [None]
  - SUICIDAL IDEATION [None]
  - TINNITUS [None]
